FAERS Safety Report 4770895-0 (Version None)
Quarter: 2005Q3

REPORT INFORMATION
  Report Type: 
  Country: None (occurrence: None)
  Receive Date: 20050915
  Receipt Date: 20041227
  Transmission Date: 20060218
  Serious: Yes (Hospitalization)
  Sender: FDA-Public Use
  Company Number: US-ROCHE-390716

PATIENT
  Age: 63 Year
  Sex: Female
  Weight: 70.2 kg

DRUGS (16)
  1. PEG-INTERFERON ALFA 2A (RO 25-8310) [Suspect]
     Route: 058
     Dates: start: 20040714, end: 20040929
  2. PEG-INTERFERON ALFA 2A (RO 25-8310) [Suspect]
     Route: 058
     Dates: start: 20041006, end: 20041221
  3. PEG-INTERFERON ALFA 2A (RO 25-8310) [Suspect]
     Route: 058
  4. RIBAVIRIN [Suspect]
     Route: 048
     Dates: start: 20040714, end: 20040925
  5. RIBAVIRIN [Suspect]
     Route: 048
     Dates: start: 20041006, end: 20041217
  6. RIBAVIRIN [Suspect]
     Route: 048
  7. AMOXICILLIN [Concomitant]
     Dates: start: 20041212, end: 20041220
  8. SIMETHICONE [Concomitant]
     Dosage: STOPPED ON 25 JANUARY 2005 AND RESTARTED.
     Dates: start: 20041002, end: 20050215
  9. ZANTAC [Concomitant]
     Dates: start: 20041129, end: 20041225
  10. VITAMIN B COMPLEX CAP [Concomitant]
     Dates: start: 20040618
  11. TYLENOL [Concomitant]
     Dates: start: 20040714, end: 20041231
  12. ALUMINUM HYDROXIDE AND MAGNESIUM TRISILICATE [Concomitant]
     Dates: start: 20040415, end: 20041225
  13. NEURONTIN [Concomitant]
     Dates: start: 20040928, end: 20041219
  14. PROMETHAZINE [Concomitant]
     Dates: start: 20040925, end: 20041004
  15. PANTOPRAZOLE SODIUM [Concomitant]
     Dates: start: 20040925, end: 20041101
  16. HEPARIN [Concomitant]
     Dates: start: 20040925, end: 20040928

REACTIONS (2)
  - GASTROENTERITIS [None]
  - URINARY TRACT INFECTION [None]
